FAERS Safety Report 10036330 (Version 1)
Quarter: 2014Q1

REPORT INFORMATION
  Report Type: Spontaneous
  Country: JP (occurrence: JP)
  Receive Date: 20140325
  Receipt Date: 20140325
  Transmission Date: 20141002
  Serious: Yes (Hospitalization)
  Sender: FDA-Public Use
  Company Number: JP-PFIZER INC-2014080777

PATIENT
  Sex: 0

DRUGS (1)
  1. AZULFIDINE EN [Suspect]
     Route: 048

REACTIONS (3)
  - Neutropenia [Unknown]
  - Agranulocytosis [Unknown]
  - Erythema [Unknown]
